FAERS Safety Report 18441203 (Version 1)
Quarter: 2020Q4

REPORT INFORMATION
  Report Type: Spontaneous
  Country: GB (occurrence: GB)
  Receive Date: 20201029
  Receipt Date: 20201029
  Transmission Date: 20210114
  Serious: Yes (Other)
  Sender: FDA-Public Use
  Company Number: GB-OTSUKA-2020_026237

PATIENT
  Age: 45 Year
  Sex: Male
  Weight: 64 kg

DRUGS (5)
  1. TOLVAPTAN [Suspect]
     Active Substance: TOLVAPTAN
     Dosage: 30 MG, QD
     Route: 048
     Dates: start: 20161213, end: 20200210
  2. AMLODIPINE [Concomitant]
     Active Substance: AMLODIPINE BESYLATE
     Indication: PRODUCT USED FOR UNKNOWN INDICATION
     Dosage: UNK
     Route: 065
  3. TOLVAPTAN [Suspect]
     Active Substance: TOLVAPTAN
     Indication: CONGENITAL CYSTIC KIDNEY DISEASE
     Dosage: 90 MG, QD
     Route: 048
     Dates: start: 20161213, end: 20200210
  4. LOSARTAN. [Concomitant]
     Active Substance: LOSARTAN
     Indication: HYPERTENSION
     Dosage: UNK
     Route: 065
     Dates: start: 202002
  5. DOXAZOSIN [Concomitant]
     Active Substance: DOXAZOSIN MESYLATE
     Indication: HYPERTENSION
     Dosage: UNK
     Route: 065
     Dates: start: 202002

REACTIONS (7)
  - Ventricular dysfunction [Unknown]
  - Dyspnoea exertional [Unknown]
  - Tachycardia [Unknown]
  - Dilatation ventricular [Unknown]
  - Cardiac failure [Not Recovered/Not Resolved]
  - Fluid retention [Unknown]
  - Ventricular hypokinesia [Unknown]

NARRATIVE: CASE EVENT DATE: 202004
